FAERS Safety Report 25852507 (Version 3)
Quarter: 2025Q4

REPORT INFORMATION
  Report Type: Report from Study
  Country: EU (occurrence: EU)
  Receive Date: 20250926
  Receipt Date: 20251110
  Transmission Date: 20260118
  Serious: Yes (Hospitalization, Other)
  Sender: NOVO NORDISK
  Company Number: EU-NOVOPROD-1526854

PATIENT
  Age: 86 Year
  Sex: Female
  Weight: 60 kg

DRUGS (5)
  1. JARDIANCE [Concomitant]
     Active Substance: EMPAGLIFLOZIN
     Indication: Blood cholesterol abnormal
     Dosage: ONE TABLET DAILY
  2. JANUMET [Concomitant]
     Active Substance: METFORMIN HYDROCHLORIDE\SITAGLIPTIN PHOSPHATE
     Indication: Blood cholesterol abnormal
     Dosage: ONE TABLET DAILY
  3. TROFOCARD [Concomitant]
     Indication: Pain
     Dosage: UNK
  4. TRESIBA [Suspect]
     Active Substance: INSULIN DEGLUDEC
     Indication: Type 2 diabetes mellitus
     Dosage: 6 TO 8 UNITS EVERY NIGHT
     Route: 058
  5. NOVORAPID [Suspect]
     Active Substance: INSULIN ASPART
     Indication: Type 2 diabetes mellitus
     Dosage: 2-10 IU DAILY
     Route: 058

REACTIONS (5)
  - Syncope [Recovered/Resolved]
  - Hypoglycaemia [Recovered/Resolved]
  - Osteoarthritis [Unknown]
  - Blood glucose increased [Not Recovered/Not Resolved]
  - Muscular weakness [Not Recovered/Not Resolved]
